FAERS Safety Report 4333540-4 (Version None)
Quarter: 2004Q1

REPORT INFORMATION
  Report Type: 
  Country: None (occurrence: None)
  Receive Date: 20040329
  Receipt Date: 20040224
  Transmission Date: 20041129
  Serious: No
  Sender: FDA-Public Use
  Company Number: 03P-163-0245112-00

PATIENT
  Age: 71 Year
  Sex: Female
  Weight: 62.5964 kg

DRUGS (8)
  1. HUMIRA [Suspect]
     Indication: RHEUMATOID ARTHRITIS
     Dosage: 40 MG, 1 IN 2 WK, SUBCUTANEOUS
     Route: 058
     Dates: start: 20030502, end: 20040213
  2. VERAPAMIL HYDROCHLORIDE [Concomitant]
  3. BISELECT [Concomitant]
  4. PRAVASTATIN SODIUM [Concomitant]
  5. HYDROXYCHLOROQUINE PHOSPHATE [Concomitant]
  6. CALCIUM [Concomitant]
  7. BUCINDOLOL HYDROCHLORIDE [Concomitant]
  8. GUAIFENESIN [Concomitant]

REACTIONS (1)
  - ECZEMA [None]
